FAERS Safety Report 14247141 (Version 2)
Quarter: 2018Q1

REPORT INFORMATION
  Report Type: Spontaneous
  Country: US (occurrence: US)
  Receive Date: 20171204
  Receipt Date: 20180115
  Transmission Date: 20180508
  Serious: Yes (Other)
  Sender: FDA-Public Use
  Company Number: US-ASTELLAS-2017US050167

PATIENT
  Sex: Female

DRUGS (2)
  1. XTANDI [Suspect]
     Active Substance: ENZALUTAMIDE
     Route: 048
     Dates: start: 20170810, end: 20171127
  2. XTANDI [Suspect]
     Active Substance: ENZALUTAMIDE
     Indication: ENDOMETRIAL CANCER
     Dosage: UNK, UNKNOWN FREQ.
     Route: 065
     Dates: start: 20161202, end: 20170601

REACTIONS (2)
  - Endometrial cancer recurrent [Unknown]
  - Off label use [Unknown]
